FAERS Safety Report 4654540-0 (Version None)
Quarter: 2005Q2

REPORT INFORMATION
  Report Type: 
  Country: None (occurrence: None)
  Receive Date: 20050504
  Receipt Date: 20050504
  Transmission Date: 20051028
  Serious: Yes (Life-Threatening, Hospitalization)
  Sender: FDA-Public Use
  Company Number: None

PATIENT
  Age: 51 Year
  Sex: Female
  Weight: 89.3586 kg

DRUGS (5)
  1. MAXALT-MLT [Suspect]
     Indication: MIGRAINE
     Dosage: 1 AT ONSET , MAY REPEAT AS NEEDED , MAX 3/MONTH  , HAS USED AS NEEDED FOR 5-7 YEARS
     Dates: start: 20051207
  2. NADOLOL [Concomitant]
  3. LISINOPRIL [Concomitant]
  4. TRAZODONE [Concomitant]
  5. WELLBUTRIN SR [Concomitant]

REACTIONS (3)
  - DRUG INEFFECTIVE [None]
  - HYPERTENSION [None]
  - MYOCARDIAL INFARCTION [None]
